FAERS Safety Report 15967651 (Version 1)
Quarter: 2019Q1

REPORT INFORMATION
  Report Type: Spontaneous
  Country: US (occurrence: US)
  Receive Date: 20190215
  Receipt Date: 20190215
  Transmission Date: 20190418
  Serious: No
  Sender: FDA-Public Use
  Company Number: US-PERRIGO-18US004775

PATIENT
  Age: 63 Year
  Sex: Female
  Weight: 81.63 kg

DRUGS (3)
  1. KOMBIGLYZE XR [Concomitant]
     Active Substance: METFORMIN HYDROCHLORIDE\SAXAGLIPTIN HYDROCHLORIDE
     Indication: TYPE 2 DIABETES MELLITUS
     Dosage: UNK
     Route: 065
     Dates: start: 2013
  2. CETIRIZINE HYDROCHLORIDE. [Suspect]
     Active Substance: CETIRIZINE HYDROCHLORIDE
     Dosage: 20 MG, SINGLE
     Route: 048
     Dates: start: 20180429, end: 20180429
  3. CETIRIZINE HYDROCHLORIDE. [Suspect]
     Active Substance: CETIRIZINE HYDROCHLORIDE
     Indication: SEASONAL ALLERGY
     Dosage: 10 MG, QD, PRN
     Route: 048
     Dates: start: 2017

REACTIONS (4)
  - Thirst [Recovered/Resolved]
  - Fatigue [Recovered/Resolved]
  - Somnolence [Recovering/Resolving]
  - Wrong product administered [Recovered/Resolved]

NARRATIVE: CASE EVENT DATE: 2017
